FAERS Safety Report 4316547-2 (Version None)
Quarter: 2004Q1

REPORT INFORMATION
  Report Type: 
  Country: None (occurrence: None)
  Receive Date: 20040308
  Receipt Date: 20031204
  Transmission Date: 20041129
  Serious: No
  Sender: FDA-Public Use
  Company Number: PHEH2003US09114

PATIENT
  Age: 56 Year
  Sex: Male
  Weight: 101.1 kg

DRUGS (11)
  1. GLEEVEC [Suspect]
     Indication: CHRONIC MYELOID LEUKAEMIA
     Dosage: 600 MG, QD; 400 MG, QD, ORAL
     Dates: start: 20010712, end: 20030717
  2. GLEEVEC [Suspect]
     Indication: CHRONIC MYELOID LEUKAEMIA
     Dosage: 600 MG, QD; 400 MG, QD, ORAL
     Dates: start: 20030717
  3. ACETYLSALICYLIC ACID SRT [Suspect]
     Dosage: ORAL
     Route: 048
  4. GLIPIZIDE [Concomitant]
  5. METFORMIN HCL [Concomitant]
  6. PIOGLITAZONE HCL [Concomitant]
  7. QUINAPRIL HCL [Concomitant]
  8. AMLODIPINE [Concomitant]
  9. GEMFIBROZIL [Concomitant]
  10. METOPROLOL [Concomitant]
  11. PLAVIX [Concomitant]

REACTIONS (1)
  - CONTUSION [None]
